FAERS Safety Report 9267334 (Version 1)
Quarter: 2013Q2

REPORT INFORMATION
  Report Type: Spontaneous
  Country: DE (occurrence: DE)
  Receive Date: 20130502
  Receipt Date: 20130502
  Transmission Date: 20140414
  Serious: Yes (Hospitalization)
  Sender: FDA-Public Use
  Company Number: DE-BANPHARM-20131221

PATIENT
  Age: 39 Year
  Sex: Female

DRUGS (6)
  1. IBUPROFEN UNKNOWN PRODUCT [Suspect]
     Dosage: 1600 MG QD, SEVERAL MONTHS,
     Route: 048
  2. REMERGIL SOLTAB [Suspect]
     Dosage: 15 MG, QD,
     Dates: start: 20121026, end: 20121029
  3. REMERGIL SOLTAB [Suspect]
     Dosage: 30 MG,QD
     Dates: start: 20121030, end: 20121030
  4. REMERGIL SOLTAB [Suspect]
     Dosage: 15 MG, QD,
     Route: 048
     Dates: start: 20121031, end: 20121121
  5. CIPRALEX [Suspect]
     Dosage: 20 MG QD, QUITE SOME TIME
     Route: 048
  6. PANTOZOL [Concomitant]
     Dosage: 40 MG, QD,
     Route: 048

REACTIONS (4)
  - Local swelling [Recovered/Resolved]
  - Oedema peripheral [Recovered/Resolved]
  - Initial insomnia [None]
  - Middle insomnia [None]
